FAERS Safety Report 5520994-0 (Version None)
Quarter: 2007Q4

REPORT INFORMATION
  Report Type: 
  Country: None (occurrence: None)
  Receive Date: 20071119
  Receipt Date: 20071109
  Transmission Date: 20080405
  Serious: Yes (Other)
  Sender: FDA-Public Use
  Company Number: JP-ROCHE-530711

PATIENT
  Age: 59 Year
  Sex: Female

DRUGS (4)
  1. DENOSINE IV [Suspect]
     Indication: ENCEPHALITIS CYTOMEGALOVIRUS
     Dosage: DRUG: DENOSINE 500MG FOR IV INFUSION
     Route: 041
     Dates: start: 20070701, end: 20070701
  2. ACYCLOVIR [Suspect]
     Indication: DRUG USE FOR UNKNOWN INDICATION
     Dosage: DRUG REPORTED AS 'ACICLOVIN'
     Route: 065
     Dates: start: 20070711, end: 20070701
  3. ANTITUBERCULOUS AGENT NOS [Suspect]
     Indication: DRUG USE FOR UNKNOWN INDICATION
     Route: 065
     Dates: start: 20070711, end: 20070701
  4. ANTIBIOTIC NOS [Suspect]
     Indication: DRUG USE FOR UNKNOWN INDICATION
     Route: 065
     Dates: start: 20070711, end: 20070701

REACTIONS (1)
  - NEPHROGENIC DIABETES INSIPIDUS [None]
